FAERS Safety Report 6680290-5 (Version None)
Quarter: 2010Q2

REPORT INFORMATION
  Report Type: 
  Country: None (occurrence: None)
  Receive Date: 20100413
  Receipt Date: 20100406
  Transmission Date: 20101027
  Serious: Yes (Other)
  Sender: FDA-Public Use
  Company Number: GB-MERCK-0804GBR00040

PATIENT
  Age: 42 Year
  Sex: Female
  Weight: 60 kg

DRUGS (5)
  1. SIMVASTATIN [Suspect]
     Indication: BLOOD CHOLESTEROL INCREASED
     Route: 048
     Dates: start: 20080221, end: 20080222
  2. AMOXICILLIN [Concomitant]
     Indication: UPPER RESPIRATORY TRACT INFECTION
     Route: 048
     Dates: start: 20080107, end: 20080109
  3. MEDROXYPROGESTERONE ACETATE [Concomitant]
     Indication: CONTRACEPTION
     Route: 030
     Dates: start: 20080131
  4. TEMAZEPAM [Concomitant]
     Indication: ANXIETY
     Route: 048
     Dates: start: 20080118, end: 20080215
  5. ZOPICLONE [Concomitant]
     Indication: INSOMNIA
     Route: 048
     Dates: start: 20071219

REACTIONS (7)
  - DIZZINESS [None]
  - HYPERHIDROSIS [None]
  - MALAISE [None]
  - PARAESTHESIA [None]
  - TACHYCARDIA [None]
  - THROAT TIGHTNESS [None]
  - VOMITING [None]
